FAERS Safety Report 22152024 (Version 1)
Quarter: 2023Q1

REPORT INFORMATION
  Report Type: Spontaneous
  Country: GB (occurrence: GB)
  Receive Date: 20230329
  Receipt Date: 20230329
  Transmission Date: 20230417
  Serious: Yes (Death, Life-Threatening, Disabling, Other)
  Sender: FDA-Public Use
  Company Number: None

PATIENT
  Age: 39 Year
  Sex: Female
  Weight: 56 kg

DRUGS (5)
  1. MIRTAZAPINE [Suspect]
     Active Substance: MIRTAZAPINE
     Indication: Perinatal depression
     Dosage: 15 MILLIGRAM
     Route: 048
     Dates: start: 20170601, end: 20170603
  2. MIRTAZAPINE [Suspect]
     Active Substance: MIRTAZAPINE
     Dosage: 15 MILLIGRAM
     Route: 048
     Dates: start: 20170612, end: 20170614
  3. MIRTAZAPINE [Suspect]
     Active Substance: MIRTAZAPINE
     Indication: Perinatal depression
     Dosage: 30 MILLIGRAM
     Route: 048
     Dates: start: 20170603, end: 20170612
  4. ZOPICLONE [Suspect]
     Active Substance: ZOPICLONE
     Indication: Insomnia
     Dosage: 3.75 MILLIGRAM
     Route: 048
     Dates: start: 20170607, end: 20170609
  5. ZOPICLONE [Suspect]
     Active Substance: ZOPICLONE
     Indication: Insomnia
     Dosage: 7.5 MILLIGRAM
     Route: 048
     Dates: start: 20170609

REACTIONS (12)
  - Suicidal ideation [Fatal]
  - Completed suicide [Fatal]
  - Drug monitoring procedure not performed [Fatal]
  - Product prescribing error [Fatal]
  - Vomiting [Fatal]
  - Akathisia [Fatal]
  - Disorientation [Fatal]
  - Tinnitus [Fatal]
  - Depression [Fatal]
  - Hallucinations, mixed [Fatal]
  - Tremor [Fatal]
  - Hypersensitivity [Fatal]

NARRATIVE: CASE EVENT DATE: 20170614
